FAERS Safety Report 15371104 (Version 1)
Quarter: 2018Q3

REPORT INFORMATION
  Report Type: Report from Study
  Country: DE (occurrence: DE)
  Receive Date: 20180911
  Receipt Date: 20180911
  Transmission Date: 20181010
  Serious: Yes (Other)
  Sender: FDA-Public Use
  Company Number: DE-MYLANLABS-2018M1066092

PATIENT
  Age: 32 Year
  Sex: Female

DRUGS (8)
  1. INSULIN ASPART [Concomitant]
     Active Substance: INSULIN ASPART
     Indication: HYPERTENSION
     Route: 064
  2. HYDROCHLOROTHIAZIDE. [Concomitant]
     Active Substance: HYDROCHLOROTHIAZIDE
     Indication: HYPERTENSION
     Dosage: UNK
     Route: 064
  3. VALSARTAN. [Suspect]
     Active Substance: VALSARTAN
     Indication: HYPERTENSION
     Dosage: 160 MG, QD
  4. LEVOTHYROXINE. [Concomitant]
     Active Substance: LEVOTHYROXINE
     Indication: HYPERTENSION
     Route: 064
  5. METOPROLOL. [Concomitant]
     Active Substance: METOPROLOL
     Indication: HYPERTENSION
     Dosage: UNK
     Route: 064
  6. METHYLDOPA. [Concomitant]
     Active Substance: METHYLDOPA
     Indication: HYPERTENSION
     Route: 064
  7. NICOTINE. [Concomitant]
     Active Substance: NICOTINE
     Indication: HYPERTENSION
     Route: 064
  8. DIHYDRALAZINE [Concomitant]
     Active Substance: DIHYDRALAZINE
     Indication: HYPERTENSION
     Route: 064

REACTIONS (3)
  - Accidental exposure to product [Unknown]
  - Maternal exposure during pregnancy [Recovered/Resolved]
  - Foetal growth restriction [Unknown]
